FAERS Safety Report 5860063-3 (Version None)
Quarter: 2008Q3

REPORT INFORMATION
  Report Type: 
  Country: None (occurrence: None)
  Receive Date: 20080827
  Receipt Date: 20080818
  Transmission Date: 20090109
  Serious: Yes (Hospitalization)
  Sender: FDA-Public Use
  Company Number: US-PFIZER INC-2008069346

PATIENT
  Sex: Male
  Weight: 79.4 kg

DRUGS (4)
  1. GEODON [Suspect]
     Indication: BIPOLAR DISORDER
     Dosage: DAILY DOSE:160MG
  2. GEODON [Suspect]
     Indication: PSYCHOTIC DISORDER
  3. DEPAKOTE [Concomitant]
     Indication: MOOD ALTERED
  4. ATIVAN [Concomitant]

REACTIONS (2)
  - BIPOLAR DISORDER [None]
  - PSYCHOTIC DISORDER [None]
